FAERS Safety Report 7785470-3 (Version None)
Quarter: 2011Q3

REPORT INFORMATION
  Report Type: 
  Country: None (occurrence: None)
  Receive Date: 20110929
  Receipt Date: 20110927
  Transmission Date: 20111222
  Serious: Yes (Death)
  Sender: FDA-Public Use
  Company Number: PHHY2008NL37303

PATIENT
  Sex: Female

DRUGS (4)
  1. SANDOSTATIN LAR [Suspect]
     Dosage: 20 MG, FOR 04 WEEKS
     Dates: start: 20060908
  2. SANDOSTATIN LAR [Suspect]
     Indication: CARCINOID TUMOUR
     Dosage: 20 MG, FOR 04 WEEKS
     Route: 030
     Dates: start: 20060420
  3. SANDOSTATIN LAR [Suspect]
     Dosage: 20 MG, QW
     Dates: start: 20080409
  4. SANDOSTATIN LAR [Suspect]
     Dosage: 20 MG, QW
     Dates: start: 20070118

REACTIONS (1)
  - DEATH [None]
